FAERS Safety Report 19406947 (Version 3)
Quarter: 2021Q2

REPORT INFORMATION
  Report Type: Report from Study
  Country: GB (occurrence: GB)
  Receive Date: 20210611
  Receipt Date: 20210618
  Transmission Date: 20210717
  Serious: Yes (Hospitalization)
  Sender: FDA-Public Use
  Company Number: GB-BRISTOL-MYERS SQUIBB COMPANY-BMS-2021-056192

PATIENT
  Age: 62 Year
  Sex: Female
  Weight: 89 kg

DRUGS (3)
  1. NIVOLUMAB [Suspect]
     Active Substance: NIVOLUMAB
     Indication: FALLOPIAN TUBE CANCER
     Dosage: 240 MILLIGRAM
     Route: 042
     Dates: start: 20210326, end: 20210519
  2. RUCAPARIB [Suspect]
     Active Substance: RUCAPARIB
     Indication: FALLOPIAN TUBE CANCER
     Dosage: 300 MILLIGRAM
     Route: 048
     Dates: start: 20210326, end: 20210529
  3. IPILIMUMAB [Suspect]
     Active Substance: IPILIMUMAB
     Indication: FALLOPIAN TUBE CANCER
     Dosage: 92.5 MILLIGRAM
     Route: 042
     Dates: start: 20210326, end: 20210519

REACTIONS (4)
  - Bronchitis [Not Recovered/Not Resolved]
  - Diarrhoea [Recovered/Resolved]
  - Urinary tract infection [Not Recovered/Not Resolved]
  - Fatigue [Not Recovered/Not Resolved]

NARRATIVE: CASE EVENT DATE: 20210606
